FAERS Safety Report 5195352-1 (Version None)
Quarter: 2006Q4

REPORT INFORMATION
  Report Type: 
  Country: None (occurrence: None)
  Receive Date: 20061024
  Receipt Date: 20060608
  Transmission Date: 20070319
  Serious: Yes (Hospitalization)
  Sender: FDA-Public Use
  Company Number: 2006-00778FE

PATIENT
  Age: 28 Year
  Sex: Female
  Weight: 56.7 kg

DRUGS (5)
  1. REPRONEX [Suspect]
     Indication: INFERTILITY
     Dosage: 75 IU QD IM
     Route: 030
     Dates: start: 20041215
  2. REPRONEX [Suspect]
     Indication: INFERTILITY
     Dosage: 150 QD IM
     Route: 030
     Dates: start: 20041216, end: 20041217
  3. PUREGON [Suspect]
     Indication: INFERTILITY
     Dosage: 117 IU QD SC
     Route: 058
     Dates: start: 20041218, end: 20041222
  4. PUREGON [Suspect]
     Indication: INFERTILITY
     Dosage: 75 IU QD SC
     Route: 058
     Dates: start: 20041223, end: 20041226
  5. CHORIONIC GONADOTROPIN [Suspect]
     Indication: OVULATION INDUCTION
     Dates: start: 20041227, end: 20041227

REACTIONS (2)
  - OVARIAN HYPERSTIMULATION SYNDROME [None]
  - PULMONARY EMBOLISM [None]
